FAERS Safety Report 8558318-7 (Version None)
Quarter: 2012Q3

REPORT INFORMATION
  Report Type: 
  Country: None (occurrence: None)
  Receive Date: 20120801
  Receipt Date: 20120709
  Transmission Date: 20120928
  Serious: No
  Sender: FDA-Public Use
  Company Number: US-ASTRAZENECA-2012SE46721

PATIENT
  Age: 43 Year
  Sex: Female
  Weight: 113.4 kg

DRUGS (4)
  1. SEROQUEL [Suspect]
     Indication: SCHIZOPHRENIA
     Route: 048
     Dates: start: 20050101, end: 20090101
  2. FLUVENT [Concomitant]
  3. NEBULIZER [Concomitant]
  4. SEROQUEL [Suspect]
     Indication: BIPOLAR DISORDER
     Route: 048
     Dates: start: 20050101, end: 20090101

REACTIONS (4)
  - COUGH [None]
  - DYSPNOEA [None]
  - RASH [None]
  - ASTHENIA [None]
